FAERS Safety Report 23116398 (Version 2)
Quarter: 2023Q4

REPORT INFORMATION
  Report Type: Spontaneous
  Country: DE (occurrence: DE)
  Receive Date: 20231027
  Receipt Date: 20231117
  Transmission Date: 20240110
  Serious: Yes (Other)
  Sender: FDA-Public Use
  Company Number: DE-JNJFOC-20231055559

PATIENT
  Age: 30 Year
  Sex: Male
  Weight: 75 kg

DRUGS (2)
  1. STELARA [Suspect]
     Active Substance: USTEKINUMAB
     Indication: Crohn^s disease
     Route: 040
     Dates: start: 20231002
  2. STELARA [Suspect]
     Active Substance: USTEKINUMAB
     Indication: Colitis ulcerative

REACTIONS (4)
  - Ascites [Recovered/Resolved]
  - Oedema peripheral [Recovered/Resolved]
  - Pleural effusion [Recovered/Resolved]
  - Protein deficiency [Recovered/Resolved]

NARRATIVE: CASE EVENT DATE: 20231006
